FAERS Safety Report 7378139-0 (Version None)
Quarter: 2011Q1

REPORT INFORMATION
  Report Type: 
  Country: None (occurrence: None)
  Receive Date: 20110328
  Receipt Date: 20110316
  Transmission Date: 20110831
  Serious: Yes (Disabling)
  Sender: FDA-Public Use
  Company Number: GB-JNJFOC-20110309950

PATIENT
  Age: 73 Year
  Sex: Female

DRUGS (7)
  1. TRAMADOL HYDROCHLORIDE [Suspect]
     Indication: PRODUCT USED FOR UNKNOWN INDICATION
     Route: 065
  2. LOSARTAN POTASSIUM [Concomitant]
  3. HYDROCORTISONE BUTYRATE [Concomitant]
  4. LEVOTHYROXINE SODIUM [Concomitant]
  5. FUROSEMIDE [Concomitant]
  6. METFORMIN [Concomitant]
  7. AMLODIPINE [Concomitant]

REACTIONS (5)
  - JOINT SWELLING [None]
  - SWELLING FACE [None]
  - SKIN BURNING SENSATION [None]
  - SKIN EXFOLIATION [None]
  - SWELLING [None]
